FAERS Safety Report 8621624-1 (Version None)
Quarter: 2012Q3

REPORT INFORMATION
  Report Type: 
  Country: None (occurrence: None)
  Receive Date: 20120820
  Receipt Date: 20120820
  Transmission Date: 20120928
  Serious: Yes (Life-Threatening)
  Sender: FDA-Public Use
  Company Number: None

PATIENT
  Age: 73 Year
  Sex: Female
  Weight: 116 kg

DRUGS (21)
  1. WARFARIN SODIUM [Concomitant]
  2. MOMETASONE FUROATE [Concomitant]
  3. ACETAMINOPHEN [Concomitant]
  4. CLINDAMYCIN [Concomitant]
  5. DOCUSATE-SENNA [Concomitant]
  6. CELECOXIB [Concomitant]
  7. TIOTROPIUM [Concomitant]
  8. ALBUTEROL AND IPRATROPIUM [Concomitant]
  9. DOCUSATE [Concomitant]
  10. MORPHINE [Concomitant]
  11. ROSUVASTATIN [Concomitant]
  12. VANCOMYCIN [Concomitant]
  13. ACETAMINOPHEN AND HYDROCODONE [Concomitant]
  14. ACETYLCYETEINE [Concomitant]
  15. ALBUTEROL [Concomitant]
  16. FENTANYL [Concomitant]
  17. BISACODYL [Concomitant]
  18. PREGABALIN [Concomitant]
  19. RIVAROXABAN 10 MG JANSSEN [Suspect]
     Dates: start: 20120501, end: 20120501
  20. CEFEPIME HYDROCHLORIDE [Concomitant]
  21. HEPARIN [Concomitant]

REACTIONS (3)
  - NEOPLASM MALIGNANT [None]
  - PULMONARY EMBOLISM [None]
  - LYMPHADENOPATHY [None]
